FAERS Safety Report 5106114-5 (Version None)
Quarter: 2006Q3

REPORT INFORMATION
  Report Type: 
  Country: None (occurrence: None)
  Receive Date: 20060912
  Receipt Date: 20060829
  Transmission Date: 20061208
  Serious: Yes (Other)
  Sender: FDA-Public Use
  Company Number: A-US2006-12978

PATIENT
  Age: 31 Year
  Sex: Female

DRUGS (3)
  1. TRACLEER [Suspect]
     Indication: PULMONARY HYPERTENSION
     Dosage: ORAL
     Route: 048
     Dates: start: 20031204, end: 20060828
  2. DIURETICS [Concomitant]
  3. ORAL CONTRACEPTIVE NOS (ORAL CONTRACEPTIVE  NOS) [Concomitant]

REACTIONS (3)
  - DRUG EXPOSURE DURING PREGNANCY [None]
  - PREGNANCY [None]
  - PREGNANCY ON ORAL CONTRACEPTIVE [None]
